FAERS Safety Report 7348358-8 (Version None)
Quarter: 2011Q1

REPORT INFORMATION
  Report Type: 
  Country: None (occurrence: None)
  Receive Date: 20110311
  Receipt Date: 20110307
  Transmission Date: 20110831
  Serious: Yes (Hospitalization)
  Sender: FDA-Public Use
  Company Number: JP-MERCK-1102USA02067

PATIENT
  Age: 63 Year
  Sex: Male

DRUGS (6)
  1. EMEND [Suspect]
     Indication: PROPHYLAXIS OF NAUSEA AND VOMITING
     Route: 048
     Dates: start: 20101130, end: 20101130
  2. FLUOROURACIL [Concomitant]
     Route: 065
  3. BEVACIZUMAB [Concomitant]
     Route: 065
  4. OXALIPLATIN [Concomitant]
     Route: 065
  5. EMEND [Suspect]
     Route: 048
     Dates: start: 20101201, end: 20101202
  6. LEVOLEUCOVORIN CALCIUM [Concomitant]
     Route: 065

REACTIONS (6)
  - VOMITING [None]
  - NAUSEA [None]
  - DECREASED APPETITE [None]
  - DUODENAL ULCER [None]
  - ABDOMINAL PAIN [None]
  - MALAISE [None]
